FAERS Safety Report 4824529-7 (Version None)
Quarter: 2005Q4

REPORT INFORMATION
  Report Type: 
  Country: None (occurrence: None)
  Receive Date: 20051108
  Receipt Date: 20051021
  Transmission Date: 20060501
  Serious: Yes (Hospitalization)
  Sender: FDA-Public Use
  Company Number: JP_051007712

PATIENT
  Age: 83 Year
  Sex: Female
  Weight: 44 kg

DRUGS (5)
  1. EVISTA [Suspect]
     Indication: OSTEOPOROSIS
     Dosage: 60 MG/1 DAY
     Dates: start: 20050621, end: 20050808
  2. ADALAT [Concomitant]
  3. ISOSORBIDE DINITRATE [Concomitant]
  4. LIPITOR [Concomitant]
  5. MUCOSTA (REBAMIPIDE) [Concomitant]

REACTIONS (1)
  - CEREBRAL INFARCTION [None]
